FAERS Safety Report 4364970-2 (Version None)
Quarter: 2004Q2

REPORT INFORMATION
  Report Type: 
  Country: None (occurrence: None)
  Receive Date: 20040521
  Receipt Date: 20040512
  Transmission Date: 20050107
  Serious: Yes (Other)
  Sender: FDA-Public Use
  Company Number: US-JNJFOC-20040500142

PATIENT
  Age: 48 Year
  Sex: Male
  Weight: 72.5755 kg

DRUGS (9)
  1. REMICADE [Suspect]
     Indication: CROHN'S DISEASE
     Dosage: INTRAVENOUS
     Route: 042
     Dates: start: 20000901
  2. PERCOCET [Concomitant]
  3. MS CONTIN [Concomitant]
  4. AMBIEN [Concomitant]
  5. XANAX [Concomitant]
  6. FLEXERIL [Concomitant]
  7. KLONOPIN [Concomitant]
  8. PENTASA [Concomitant]
  9. ASULFADINE (SULFASALAZINE) [Concomitant]

REACTIONS (8)
  - AMNESIA [None]
  - BLOOD PRESSURE DECREASED [None]
  - BRADYPHRENIA [None]
  - LOSS OF CONSCIOUSNESS [None]
  - MULTIPLE SCLEROSIS [None]
  - NUCLEAR MAGNETIC RESONANCE IMAGING BRAIN ABNORMAL [None]
  - PAIN [None]
  - SYSTEMIC LUPUS ERYTHEMATOSUS [None]
